FAERS Safety Report 6894739-6 (Version None)
Quarter: 2010Q3

REPORT INFORMATION
  Report Type: 
  Country: None (occurrence: None)
  Receive Date: 20100728
  Receipt Date: 20100714
  Transmission Date: 20110219
  Serious: Yes (Hospitalization)
  Sender: FDA-Public Use
  Company Number: 1000015197

PATIENT
  Age: 75 Year
  Sex: Female

DRUGS (6)
  1. NEBIVOLOL HCL [Suspect]
     Indication: HYPERTENSION
     Dosage: ORAL
     Route: 048
     Dates: start: 20080705
  2. LORAZEPAM [Suspect]
     Dosage: 7.5 MG (7.5 MG, 1 IN 1 D), ORAL
     Route: 048
     Dates: start: 20090705
  3. AMITRIPTYLINE HCL [Suspect]
     Indication: DEPRESSION
     Dosage: 10 DROPS (1 IN 1 D), ORAL
     Route: 048
     Dates: start: 20090705, end: 20100701
  4. AMITRIPTYLINE HCL [Suspect]
     Indication: DEPRESSION
     Dosage: 15 DROPS (1 IN 1 D), ORAL
     Route: 048
     Dates: start: 20100702, end: 20100704
  5. MUTABON [Suspect]
     Dosage: ORAL
     Route: 048
     Dates: start: 20090705
  6. TALAVIR [Suspect]
     Indication: HERPES ZOSTER
     Dosage: 3 TABLETS (1 IN 1 D), ORAL
     Route: 048
     Dates: start: 20100701, end: 20100705

REACTIONS (5)
  - FATIGUE [None]
  - HYPOTENSION [None]
  - PALPITATIONS [None]
  - SOMNOLENCE [None]
  - SYNCOPE [None]
